FAERS Safety Report 4938484-2 (Version None)
Quarter: 2006Q1

REPORT INFORMATION
  Report Type: 
  Country: None (occurrence: None)
  Receive Date: 20060309
  Receipt Date: 20050504
  Transmission Date: 20060701
  Serious: Yes (Other)
  Sender: FDA-Public Use
  Company Number: PHNU2005DE01866

PATIENT
  Age: 61 Year
  Sex: Female
  Weight: 90 kg

DRUGS (1)
  1. ZOMETA [Suspect]
     Indication: METASTASES TO BONE
     Dosage: UNKNOWN
     Route: 042
     Dates: end: 20050301

REACTIONS (12)
  - COMPUTERISED TOMOGRAM ABNORMAL [None]
  - IMPAIRED HEALING [None]
  - OEDEMA MUCOSAL [None]
  - OPEN WOUND [None]
  - ORAL MUCOSAL DISORDER [None]
  - OSTEOLYSIS [None]
  - OSTEOMYELITIS CHRONIC [None]
  - OSTEONECROSIS [None]
  - PERIODONTITIS [None]
  - PRIMARY SEQUESTRUM [None]
  - TOOTH EXTRACTION [None]
  - WOUND TREATMENT [None]
